FAERS Safety Report 7002595-0 (Version None)
Quarter: 2010Q3

REPORT INFORMATION
  Report Type: 
  Country: None (occurrence: None)
  Receive Date: 20100920
  Receipt Date: 20100511
  Transmission Date: 20110219
  Serious: No
  Sender: FDA-Public Use
  Company Number: US-ASTRAZENECA-2009UW21052

PATIENT
  Age: 57 Year
  Sex: Female
  Weight: 84.8 kg

DRUGS (7)
  1. SEROQUEL [Suspect]
     Indication: INSOMNIA
     Route: 048
     Dates: start: 20060725, end: 20070301
  2. SEROQUEL [Suspect]
     Indication: ANXIETY
     Route: 048
     Dates: start: 20060725, end: 20070301
  3. LYRICA [Concomitant]
     Dates: start: 20060725
  4. CYMBALTA [Concomitant]
     Dates: start: 20060731
  5. ZOMIG [Concomitant]
     Dates: start: 20060822
  6. IMITREX [Concomitant]
  7. REQUIP [Concomitant]
     Dates: start: 20060818

REACTIONS (3)
  - DIABETES MELLITUS [None]
  - RESPIRATORY DISORDER [None]
  - WEIGHT INCREASED [None]
